FAERS Safety Report 11324532 (Version 1)
Quarter: 2015Q3

REPORT INFORMATION
  Report Type: Spontaneous
  Country: US (occurrence: US)
  Receive Date: 20150730
  Receipt Date: 20150730
  Transmission Date: 20151125
  Serious: Yes (Hospitalization, Other)
  Sender: FDA-Public Use
  Company Number: US-GLAXOSMITHKLINE-US2015108749

PATIENT
  Age: 72 Year
  Sex: Male

DRUGS (2)
  1. ADVAIR DISKUS [Suspect]
     Active Substance: FLUTICASONE PROPIONATE\SALMETEROL XINAFOATE
     Indication: CHRONIC OBSTRUCTIVE PULMONARY DISEASE
     Dosage: 1 PUFF(S), 1D
     Route: 055
     Dates: start: 2006, end: 2015
  2. SPIRIVA [Concomitant]
     Active Substance: TIOTROPIUM BROMIDE MONOHYDRATE

REACTIONS (10)
  - Bladder cancer [Not Recovered/Not Resolved]
  - Vomiting [Recovering/Resolving]
  - Atrial fibrillation [Recovered/Resolved]
  - Neoplasm malignant [Unknown]
  - Bladder operation [Not Recovered/Not Resolved]
  - Nausea [Recovering/Resolving]
  - Cardiac pacemaker insertion [Recovered/Resolved]
  - Weight decreased [Not Recovered/Not Resolved]
  - Cardiac operation [Recovered/Resolved]
  - Aortic injury [Recovered/Resolved]

NARRATIVE: CASE EVENT DATE: 201311
